FAERS Safety Report 19213368 (Version 3)
Quarter: 2021Q2

REPORT INFORMATION
  Report Type: Report from Study
  Country: AR (occurrence: AR)
  Receive Date: 20210504
  Receipt Date: 20210602
  Transmission Date: 20210717
  Serious: Yes (Hospitalization, Other)
  Sender: FDA-Public Use
  Company Number: NVSC2021AR015516

PATIENT
  Age: 63 Year
  Sex: Male

DRUGS (6)
  1. PANTOPRAZOLE [Concomitant]
     Active Substance: PANTOPRAZOLE
     Indication: PRODUCT USED FOR UNKNOWN INDICATION
     Dosage: 1 DF (40 MG), QD
     Route: 065
  2. COSENTYX [Suspect]
     Active Substance: SECUKINUMAB
     Dosage: 1 DF, QMO
     Route: 058
     Dates: start: 202012
  3. COSENTYX [Suspect]
     Active Substance: SECUKINUMAB
     Dosage: 1 DF, QMO
     Route: 058
     Dates: start: 20210405
  4. COSENTYX [Suspect]
     Active Substance: SECUKINUMAB
     Indication: ANKYLOSING SPONDYLITIS
     Dosage: 1 DF, QMO
     Route: 058
     Dates: start: 2018
  5. COSENTYX [Suspect]
     Active Substance: SECUKINUMAB
     Dosage: 150 MG, QMO
     Route: 058
     Dates: start: 20190313
  6. CALMADOR PLUS [Concomitant]
     Indication: PAIN
     Dosage: 1 DF (37.5 MG/ 325 MG), UNKNOWN
     Route: 065

REACTIONS (24)
  - Hepatic mass [Unknown]
  - Pelvic pain [Unknown]
  - Dysphagia [Unknown]
  - Computerised tomogram abdomen abnormal [Unknown]
  - Trismus [Unknown]
  - Hepatic steatosis [Unknown]
  - Lung opacity [Unknown]
  - Blood bilirubin unconjugated increased [Unknown]
  - Irritable bowel syndrome [Recovered/Resolved]
  - Computerised tomogram pelvis abnormal [Unknown]
  - Appendicitis [Unknown]
  - Abdominal pain [Recovered/Resolved]
  - Pleural thickening [Unknown]
  - Haematocrit decreased [Unknown]
  - Diverticulum intestinal [Unknown]
  - Dysuria [Recovering/Resolving]
  - Irritable bowel syndrome [Unknown]
  - Pain [Recovered/Resolved]
  - Urinary tract infection [Recovering/Resolving]
  - Change of bowel habit [Unknown]
  - Haemoglobin decreased [Unknown]
  - Degenerative bone disease [Unknown]
  - Arteriosclerosis [Unknown]
  - Spinal flattening [Unknown]

NARRATIVE: CASE EVENT DATE: 20201221
